FAERS Safety Report 7406364-9 (Version None)
Quarter: 2011Q2

REPORT INFORMATION
  Report Type: 
  Country: None (occurrence: None)
  Receive Date: 20110411
  Receipt Date: 20110331
  Transmission Date: 20111010
  Serious: Yes (Hospitalization, Other)
  Sender: FDA-Public Use
  Company Number: US-AMGEN-USASP2011006248

PATIENT
  Age: 74 Year
  Sex: Male
  Weight: 60.5 kg

DRUGS (19)
  1. DAPSONE [Concomitant]
  2. ENGERIX-B [Concomitant]
  3. MAGNESIUM GLUCONATE [Concomitant]
  4. EPOGEN [Suspect]
     Dosage: 20000 IU, 3 TIMES/WK
     Route: 042
     Dates: start: 20100821, end: 20100902
  5. NEOMYCIN SULFATE [Concomitant]
  6. EPOGEN [Suspect]
     Dosage: 10000 IU, 3 TIMES/WK
     Route: 042
     Dates: start: 20100809, end: 20100820
  7. CYCLOSPORINE [Suspect]
     Dosage: 75 MG, BID
     Route: 048
     Dates: start: 20100902
  8. PRILOSEC [Concomitant]
  9. URSODIOL [Concomitant]
  10. FLUVACCIN [Concomitant]
  11. EPOGEN [Suspect]
     Indication: RENAL FAILURE CHRONIC
     Dosage: 28000 IU, 3 TIMES/WK
     Route: 042
     Dates: start: 20100903
  12. NADOLOL [Concomitant]
  13. LACTULOSE [Concomitant]
  14. SODIUM BICARBONATE [Concomitant]
  15. FERROUS SULFATE TAB [Concomitant]
  16. HEPARIN [Concomitant]
     Dosage: UNK
     Dates: end: 20110127
  17. PREDNISONE [Concomitant]
  18. PROSTAT                            /00093602/ [Concomitant]
  19. ZINC SULFATE [Concomitant]

REACTIONS (16)
  - PANCYTOPENIA [None]
  - PYREXIA [None]
  - SYNCOPE [None]
  - APLASIA PURE RED CELL [None]
  - ANAEMIA OF CHRONIC DISEASE [None]
  - GASTRITIS EROSIVE [None]
  - GASTRIC ANTRAL VASCULAR ECTASIA [None]
  - FALL [None]
  - OESOPHAGEAL VARICES HAEMORRHAGE [None]
  - IRON DEFICIENCY ANAEMIA [None]
  - VISUAL IMPAIRMENT [None]
  - OCCULT BLOOD POSITIVE [None]
  - COMPLICATIONS OF TRANSPLANTED LIVER [None]
  - HEARING IMPAIRED [None]
  - COLONIC POLYP [None]
  - NO THERAPEUTIC RESPONSE [None]
